FAERS Safety Report 4307595-7 (Version None)
Quarter: 2004Q1

REPORT INFORMATION
  Report Type: 
  Country: None (occurrence: None)
  Receive Date: 20040226
  Receipt Date: 20040217
  Transmission Date: 20041129
  Serious: Yes (Hospitalization)
  Sender: FDA-Public Use
  Company Number: 2004-02-1150

PATIENT
  Age: 37 Year
  Sex: Male
  Weight: 145 kg

DRUGS (8)
  1. CELESTONE [Suspect]
     Indication: BRONCHITIS ACUTE
     Dosage: ORAL
     Route: 048
     Dates: start: 20031129, end: 20031203
  2. PERINDOPRIL/INDAPAMINE TABLETS [Suspect]
     Indication: HYPERTENSION
     Dosage: 1 QD ORAL
     Route: 048
  3. DIMOTAPP [Concomitant]
  4. DOLIPRANE [Concomitant]
  5. TAREG (VALSARTAN) [Suspect]
     Indication: HYPERTENSION
     Dosage: 1 QD ORAL
     Route: 048
  6. KETEK [Suspect]
     Indication: BRONCHITIS ACUTE
     Dosage: ORAL
     Route: 048
     Dates: start: 20031119, end: 20031203
  7. PNEUMOREL [Suspect]
     Indication: BRONCHITIS ACUTE
     Dosage: ORAL
     Route: 048
     Dates: start: 20031129, end: 20031203
  8. VACCINE (NOS) [Suspect]
     Indication: LEPTOSPIROSIS
     Dosage: SUBCUTANEOUS
     Route: 058
     Dates: start: 20031027, end: 20031127

REACTIONS (6)
  - ANGINA PECTORIS [None]
  - BLOOD CREATINE PHOSPHOKINASE INCREASED [None]
  - BRAIN NATRIURETIC PEPTIDE INCREASED [None]
  - BRONCHITIS ACUTE [None]
  - CARDIOMYOPATHY [None]
  - GENERAL PHYSICAL HEALTH DETERIORATION [None]
